FAERS Safety Report 23192288 (Version 1)
Quarter: 2023Q4

REPORT INFORMATION
  Report Type: Spontaneous
  Country: CN (occurrence: CN)
  Receive Date: 20231116
  Receipt Date: 20231116
  Transmission Date: 20240110
  Serious: Yes (Hospitalization)
  Sender: FDA-Public Use
  Company Number: CN-009507513-2311CHN003999

PATIENT
  Age: 41 Year
  Sex: Male
  Weight: 78 kg

DRUGS (3)
  1. KEYTRUDA [Suspect]
     Active Substance: PEMBROLIZUMAB
     Indication: Neoplasm malignant
     Dosage: 0.2 G, EVERY 14 DAYS (Q2W, QOW), IV DRIP
     Route: 041
     Dates: start: 20230812, end: 20230812
  2. CARBOPLATIN [Suspect]
     Active Substance: CARBOPLATIN
     Indication: Neoplasm malignant
     Dosage: 700 MG, EVERY 14 DAYS (Q2W, QOW), IV DRIP
     Route: 041
     Dates: start: 20230812, end: 20230812
  3. ALIMTA [Suspect]
     Active Substance: PEMETREXED DISODIUM
     Indication: Neoplasm malignant
     Dosage: 1 G, EVERY 14 DAYS (Q2W, QOW), IV DRIP
     Route: 041
     Dates: start: 20230812, end: 20230812

REACTIONS (2)
  - Drug eruption [Recovering/Resolving]
  - Inappropriate schedule of product administration [Unknown]

NARRATIVE: CASE EVENT DATE: 20230812
